FAERS Safety Report 21024341 (Version 1)
Quarter: 2022Q2

REPORT INFORMATION
  Report Type: Spontaneous
  Country: PL (occurrence: PL)
  Receive Date: 20220629
  Receipt Date: 20220629
  Transmission Date: 20220721
  Serious: Yes (Other)
  Sender: FDA-Public Use
  Company Number: PL-002147023-NVSC2022PL142556

PATIENT
  Sex: Male

DRUGS (3)
  1. ADALIMUMAB [Suspect]
     Active Substance: ADALIMUMAB
     Indication: Product used for unknown indication
     Dosage: UNK (1ST CYCLE)
     Route: 058
     Dates: start: 201506, end: 201603
  2. ADALIMUMAB [Suspect]
     Active Substance: ADALIMUMAB
     Dosage: UNK (2ND CYCLE)
     Route: 058
     Dates: start: 201701, end: 201810
  3. METHOTREXATE [Concomitant]
     Active Substance: METHOTREXATE
     Indication: Product used for unknown indication
     Dosage: 20 MG, QW
     Dates: start: 201406, end: 202206

REACTIONS (7)
  - Necrotising scleritis [Unknown]
  - Choroiditis [Unknown]
  - Tuberculous pleurisy [Unknown]
  - Pulmonary tuberculosis [Unknown]
  - Lymph node tuberculosis [Unknown]
  - Skin lesion [Unknown]
  - Drug ineffective [Unknown]
